FAERS Safety Report 5237372-4 (Version None)
Quarter: 2007Q1

REPORT INFORMATION
  Report Type: 
  Country: None (occurrence: None)
  Receive Date: 20070213
  Receipt Date: 20070202
  Transmission Date: 20070707
  Serious: Yes (Hospitalization)
  Sender: FDA-Public Use
  Company Number: GB-SHR-GB-2006-039107

PATIENT

DRUGS (1)
  1. BETASERON [Suspect]
     Route: 058

REACTIONS (2)
  - INJECTION SITE CELLULITIS [None]
  - NECROSIS [None]
